FAERS Safety Report 26133959 (Version 1)
Quarter: 2025Q4

REPORT INFORMATION
  Report Type: Report from Study
  Country: LB (occurrence: LB)
  Receive Date: 20251209
  Receipt Date: 20251209
  Transmission Date: 20260118
  Serious: Yes (Death)
  Sender: ROCHE
  Company Number: LB-ROCHE-10000451263

PATIENT
  Age: 59 Year
  Sex: Male

DRUGS (1)
  1. TECENTRIQ [Suspect]
     Active Substance: ATEZOLIZUMAB
     Indication: Hepatocellular carcinoma
     Route: 042
     Dates: start: 20251001, end: 20251022

REACTIONS (1)
  - Death [Fatal]

NARRATIVE: CASE EVENT DATE: 20251120
